FAERS Safety Report 21155461 (Version 1)
Quarter: 2022Q3

REPORT INFORMATION
  Report Type: Spontaneous
  Country: CN (occurrence: CN)
  Receive Date: 20220801
  Receipt Date: 20220801
  Transmission Date: 20221027
  Serious: Yes (Hospitalization)
  Sender: FDA-Public Use
  Company Number: CN-MLMSERVICE-20220718-3682169-1

PATIENT
  Age: 69 Year
  Sex: Female

DRUGS (3)
  1. LORATADINE [Suspect]
     Active Substance: LORATADINE
     Indication: Rhinitis allergic
     Route: 048
     Dates: start: 20201025, end: 20201028
  2. DACOMITINIB [Suspect]
     Active Substance: DACOMITINIB
     Indication: Non-small cell lung cancer
     Dosage: MORE THAN 1 MONTH
     Route: 048
     Dates: start: 20200929, end: 202011
  3. METOPROLOL [Suspect]
     Active Substance: METOPROLOL
     Indication: Tachycardia
     Route: 048
     Dates: start: 20201031, end: 20201104

REACTIONS (3)
  - Drug-induced liver injury [Recovered/Resolved]
  - Mixed liver injury [Recovered/Resolved]
  - Tachycardia [None]

NARRATIVE: CASE EVENT DATE: 20201001
